FAERS Safety Report 10179722 (Version 1)
Quarter: 2014Q2

REPORT INFORMATION
  Report Type: Spontaneous
  Country: US (occurrence: None)
  Receive Date: 20140425
  Receipt Date: 20140425
  Transmission Date: 20141212
  Serious: No
  Sender: FDA-Public Use
  Company Number: AP356-00475-SPO-US

PATIENT
  Age: 82 Year
  Sex: Male
  Weight: 99.09 kg

DRUGS (11)
  1. BELVIQ (LORCASERIN HYDROCHLORIDE) [Suspect]
     Indication: WEIGHT DECREASED
     Route: 048
     Dates: start: 201402, end: 20140222
  2. METFORMIN (METFORMIN) [Concomitant]
  3. ALLOPURINOL (ALLOPURINOL) [Concomitant]
  4. FUROSEMIDE (FUROSEMIDE) [Concomitant]
  5. K-DUR (POTASSIUM CHLORIDE) [Concomitant]
  6. LISINOPRIL (LISINOPRIL) [Concomitant]
  7. BABY ASPIRIN (ACETYLSALICYLIC ACID) [Concomitant]
  8. GLIPIZIDE (GLIPIZIDE) [Concomitant]
  9. TERAZOSIN (TERAZOSIN) (TERAZOSIN) [Concomitant]
  10. VERAPAMIL (VERAPAMIL) [Concomitant]
  11. PRAVASTATIN (PRAVASTATIN) [Concomitant]

REACTIONS (1)
  - Feeling hot [None]
